FAERS Safety Report 19707014 (Version 1)
Quarter: 2021Q3

REPORT INFORMATION
  Report Type: Spontaneous
  Country: US (occurrence: US)
  Receive Date: 20210816
  Receipt Date: 20210816
  Transmission Date: 20211014
  Serious: No
  Sender: FDA-Public Use
  Company Number: None

PATIENT
  Age: 35 Year
  Sex: Female

DRUGS (1)
  1. VUMERITY [Suspect]
     Active Substance: DIROXIMEL FUMARATE
     Indication: MULTIPLE SCLEROSIS
     Route: 048
     Dates: start: 20201203

REACTIONS (6)
  - Visual impairment [None]
  - Vision blurred [None]
  - Hypoaesthesia [None]
  - Vertigo [None]
  - Dizziness [None]
  - Condition aggravated [None]

NARRATIVE: CASE EVENT DATE: 20210520
